FAERS Safety Report 17051468 (Version 1)
Quarter: 2019Q4

REPORT INFORMATION
  Report Type: Spontaneous
  Country: US (occurrence: US)
  Receive Date: 20191120
  Receipt Date: 20191120
  Transmission Date: 20200122
  Serious: Yes (Hospitalization)
  Sender: FDA-Public Use
  Company Number: US-ASTRAZENECA-2019SF62778

PATIENT
  Age: 10 Month
  Sex: Female
  Weight: 5.6 kg

DRUGS (4)
  1. POLY-VI-SOL [Concomitant]
     Active Substance: VITAMINS
  2. SYNAGIS [Suspect]
     Active Substance: PALIVIZUMAB
     Indication: BRONCHOPULMONARY DYSPLASIA
     Dosage: 100MG/ML MONTHLY
     Route: 030
     Dates: start: 20191015
  3. FUROSEMIDE. [Concomitant]
     Active Substance: FUROSEMIDE
  4. SYNAGIS [Suspect]
     Active Substance: PALIVIZUMAB
     Indication: PREMATURE BABY
     Dosage: 100MG/ML MONTHLY
     Route: 030
     Dates: start: 20191015

REACTIONS (1)
  - Bronchitis viral [Unknown]

NARRATIVE: CASE EVENT DATE: 20191015
